FAERS Safety Report 10520735 (Version 4)
Quarter: 2015Q1

REPORT INFORMATION
  Report Type: Report from Study
  Country: US (occurrence: AU)
  Receive Date: 20141015
  Receipt Date: 20150309
  Transmission Date: 20150720
  Serious: Yes (Hospitalization)
  Sender: FDA-Public Use
  Company Number: US-009507513-1410AUS004568

PATIENT
  Age: 66 Year
  Sex: Female

DRUGS (35)
  1. BORTEZOMIB [Suspect]
     Active Substance: BORTEZOMIB
     Indication: PLASMA CELL MYELOMA
     Dosage: DAILY DOSE 1.3 MG/M2,ON DAYS 1,4, 8 AND 11 OF A 21 DAY CYCLE   , CYCLICAL
     Route: 058
     Dates: start: 20140715, end: 20140815
  2. ABT-199 [Suspect]
     Active Substance: VENETOCLAX
     Indication: PLASMA CELL MYELOMA
     Dosage: 300 MG, QD
     Route: 048
     Dates: start: 20140715, end: 20140825
  3. ALLOPURINOL. [Concomitant]
     Active Substance: ALLOPURINOL
     Indication: PROPHYLAXIS
     Dosage: UNK
     Route: 048
  4. RASBURICASE [Concomitant]
     Active Substance: RASBURICASE
     Indication: PROPHYLAXIS
     Dosage: UNK
     Route: 042
  5. RESPRIM [Concomitant]
     Indication: ANTIBIOTIC PROPHYLAXIS
     Dosage: 160/180 MG, QD
     Route: 048
     Dates: start: 20140715, end: 20140727
  6. BORTEZOMIB [Suspect]
     Active Substance: BORTEZOMIB
     Dosage: DAILY DOSE 1.3 MG/M2,ON DAYS 1,4, 8 AND 11 OF A 21 DAY CYCLE   , CYCLICAL
     Route: 058
     Dates: start: 20140829
  7. SODIUM CHLORIDE. [Concomitant]
     Active Substance: SODIUM CHLORIDE
     Indication: PROPHYLAXIS
     Dosage: DAILY DOSE 4 LITERS, ONCE
     Route: 042
     Dates: start: 20140713, end: 20140714
  8. AMLODIPINE BESYLATE. [Concomitant]
     Active Substance: AMLODIPINE BESYLATE
     Dosage: 10 MG, QD
     Route: 048
     Dates: start: 20140728
  9. ACETAMINOPHEN. [Concomitant]
     Active Substance: ACETAMINOPHEN
     Indication: OSTEOARTHRITIS
     Dosage: DAILY DOSE 1 G, PRN
     Route: 048
     Dates: start: 2005
  10. ELECTROLYTES (UNSPECIFIED) (+) SODIUM LACTATE [Concomitant]
     Indication: PROPHYLAXIS
     Dosage: DAILY DOSE 5 LITERS, QD
     Route: 042
     Dates: start: 20140713, end: 20140716
  11. SODIUM CHLORIDE. [Concomitant]
     Active Substance: SODIUM CHLORIDE
     Indication: FLUID REPLACEMENT
  12. MAGNESIUM (UNSPECIFIED) [Concomitant]
     Active Substance: MAGNESIUM
     Dosage: 2 TABLETS, BID
     Route: 048
     Dates: start: 20140805, end: 20140818
  13. ACYCLOVIR. [Concomitant]
     Active Substance: ACYCLOVIR
     Indication: ANTIVIRAL PROPHYLAXIS
     Dosage: 400 MG, BID
     Route: 048
     Dates: start: 20140714
  14. RESPRIM [Concomitant]
     Dosage: UNK, QD
     Route: 048
     Dates: start: 20140805, end: 20140825
  15. ABT-199 [Suspect]
     Active Substance: VENETOCLAX
     Dosage: 300 MG, QD
     Route: 048
     Dates: start: 20140829
  16. PANADOL [Concomitant]
     Active Substance: ACETAMINOPHEN
     Indication: OSTEOARTHRITIS
     Dosage: 2 TABLETS, TID
     Route: 048
     Dates: start: 2009
  17. MOVICOL [Concomitant]
     Active Substance: POLYETHYLENE GLYCOL 3350\POTASSIUM CHLORIDE\SODIUM BICARBONATE\SODIUM CHLORIDE
     Indication: CONSTIPATION PROPHYLAXIS
     Dosage: 2 SACHET, PRN
     Route: 048
     Dates: start: 20140718
  18. OMEPRAZOLE. [Concomitant]
     Active Substance: OMEPRAZOLE
     Indication: GASTRITIS
     Dosage: 20 MG, QD
     Route: 048
     Dates: start: 20140812
  19. OXYCONTIN [Concomitant]
     Active Substance: OXYCODONE HYDROCHLORIDE
     Indication: THORACIC VERTEBRAL FRACTURE
     Dosage: 20 MG, BID
     Route: 048
     Dates: start: 20140718
  20. AMLODIPINE BESYLATE. [Concomitant]
     Active Substance: AMLODIPINE BESYLATE
     Indication: HYPERTENSION
     Dosage: 5 MG, QD
     Route: 048
     Dates: start: 20140711, end: 20140727
  21. ZOMETA [Concomitant]
     Active Substance: ZOLEDRONIC ACID
     Indication: PROPHYLAXIS
     Dosage: DAILY DOSE 4 MG, 1 IN 56 DAYS
     Route: 042
     Dates: start: 20120613
  22. DEXAMETHASONE. [Suspect]
     Active Substance: DEXAMETHASONE
     Indication: PLASMA CELL MYELOMA
     Dosage: DAILY DOSE 20 MG ON DAYS 1,2,4,5,8,9,11 AND 12 OF A 21 DAY CYCLE , CYCLICAL
     Route: 048
     Dates: start: 20140715, end: 20140816
  23. DEXAMETHASONE. [Suspect]
     Active Substance: DEXAMETHASONE
     Dosage: DAILY DOSE 20 MG ON DAYS 1,2,4,5,8,9,11 AND 12 OF A 21 DAY CYCLE , CYCLICAL
     Route: 048
     Dates: start: 20140829
  24. CLEXANE (ENOXAPARIN SODIUM) [Concomitant]
     Active Substance: ENOXAPARIN SODIUM
     Indication: THROMBOSIS PROPHYLAXIS
     Dosage: 40 MG, QD
     Route: 058
     Dates: start: 20140713, end: 20140727
  25. CLEXANE (ENOXAPARIN SODIUM) [Concomitant]
     Active Substance: ENOXAPARIN SODIUM
     Dosage: 80 MG, BID
     Route: 058
     Dates: start: 20140728, end: 20140818
  26. MAGNESIUM (UNSPECIFIED) [Concomitant]
     Active Substance: MAGNESIUM
     Indication: FIBROMYALGIA
     Dosage: 2 TABLET, BID
     Route: 048
     Dates: start: 2006, end: 20140715
  27. COLOXYL WITH SENNA [Concomitant]
     Active Substance: DOCUSATE\SENNOSIDES
     Indication: CONSTIPATION PROPHYLAXIS
     Dosage: 2 TABLET, PRN
     Route: 048
     Dates: start: 20140711
  28. VOLTAREN [Concomitant]
     Active Substance: DICLOFENAC SODIUM
     Indication: OSTEOARTHRITIS
     Dosage: DAILY DOSE 1.16%/50G
     Route: 061
     Dates: start: 2006
  29. HIRUDOID [Concomitant]
     Active Substance: GLYCOSAMINOGLYCANS
     Indication: CONTUSION
     Dosage: AS REQUIRED
     Route: 061
     Dates: start: 20140819
  30. OXYCONTIN [Concomitant]
     Active Substance: OXYCODONE HYDROCHLORIDE
     Indication: BACK PAIN
     Dosage: 10 MG, BID
     Route: 048
     Dates: start: 20140713, end: 20140717
  31. OXYCODONE [Concomitant]
     Active Substance: OXYCODONE
     Indication: BACK PAIN
     Dosage: DAILY DOSE 5 MG, PRN
     Route: 048
     Dates: start: 20140713
  32. MAGNESIUM (UNSPECIFIED) [Concomitant]
     Active Substance: MAGNESIUM
     Dosage: 3 TABLET, BID
     Route: 048
     Dates: start: 20140716, end: 20140804
  33. MAGNESIUM (UNSPECIFIED) [Concomitant]
     Active Substance: MAGNESIUM
     Dosage: 2 TABLETS, TID
     Dates: start: 20140819
  34. CETIRIZINE HYDROCHLORIDE. [Concomitant]
     Active Substance: CETIRIZINE HYDROCHLORIDE
     Indication: RHINITIS PERENNIAL
     Dosage: 10 MG, QD
     Route: 048
     Dates: start: 2009
  35. RESPRIM [Concomitant]
     Dosage: 160/180 MG, 1 TABLET IN 2 DAY
     Route: 048
     Dates: start: 20140728, end: 20140804

REACTIONS (6)
  - Contusion [Unknown]
  - Haematoma [Unknown]
  - Embolism [Unknown]
  - Oedema peripheral [Recovered/Resolved]
  - Pulmonary embolism [Unknown]
  - Hyperkalaemia [Unknown]

NARRATIVE: CASE EVENT DATE: 2014
